FAERS Safety Report 20218501 (Version 1)
Quarter: 2021Q4

REPORT INFORMATION
  Report Type: Spontaneous
  Country: US (occurrence: US)
  Receive Date: 20211222
  Receipt Date: 20211222
  Transmission Date: 20220303
  Serious: No
  Sender: FDA-Public Use
  Company Number: US-BioHaven Pharmaceuticals-2021BHV000622

PATIENT
  Sex: Female
  Weight: 58.112 kg

DRUGS (1)
  1. NURTEC ODT [Suspect]
     Active Substance: RIMEGEPANT SULFATE
     Indication: Migraine
     Route: 048
     Dates: start: 202108

REACTIONS (5)
  - Insomnia [None]
  - Abdominal discomfort [None]
  - Heart rate increased [None]
  - Heart rate abnormal [None]
  - Sleep disorder [None]
